FAERS Safety Report 6686475-6 (Version None)
Quarter: 2010Q2

REPORT INFORMATION
  Report Type: 
  Country: None (occurrence: None)
  Receive Date: 20100414
  Receipt Date: 20100330
  Transmission Date: 20101027
  Serious: Yes (Hospitalization)
  Sender: FDA-Public Use
  Company Number: 232516J09USA

PATIENT
  Age: 31 Year
  Sex: Female
  Weight: 52 kg

DRUGS (2)
  1. REBIF [Suspect]
     Indication: MULTIPLE SCLEROSIS
     Dosage: 44 MCG, 3 IN 1 WK, SUBCUTANEOUS
     Route: 058
     Dates: start: 20090901
  2. ALEVE [Concomitant]

REACTIONS (6)
  - ASTHENIA [None]
  - DEHYDRATION [None]
  - FALL [None]
  - FATIGUE [None]
  - FEELING HOT [None]
  - VOMITING [None]
